FAERS Safety Report 8175023-X (Version None)
Quarter: 2012Q1

REPORT INFORMATION
  Report Type: 
  Country: None (occurrence: None)
  Receive Date: 20120229
  Receipt Date: 20120221
  Transmission Date: 20120608
  Serious: Yes (Other)
  Sender: FDA-Public Use
  Company Number: PHHY2012JP016179

PATIENT
  Sex: Female

DRUGS (2)
  1. WARFARIN SODIUM [Concomitant]
     Route: 048
  2. LAMISIL [Suspect]
     Dosage: UNK
     Route: 048
     Dates: start: 20101101, end: 20110101

REACTIONS (1)
  - MUSCULOSKELETAL DISORDER [None]
